FAERS Safety Report 16607958 (Version 1)
Quarter: 2019Q3

REPORT INFORMATION
  Report Type: Spontaneous
  Country: CA (occurrence: CA)
  Receive Date: 20190722
  Receipt Date: 20190722
  Transmission Date: 20191004
  Serious: Yes (Other)
  Sender: FDA-Public Use
  Company Number: CA-TEVA-2019-CA-1079740

PATIENT
  Age: 36 Year
  Sex: Male

DRUGS (6)
  1. MORPHINE [Suspect]
     Active Substance: MORPHINE
     Indication: PAIN
     Route: 065
  2. OXYCODONE [Suspect]
     Active Substance: OXYCODONE
     Indication: PAIN
     Route: 065
  3. OXYCODONE [Suspect]
     Active Substance: OXYCODONE
     Indication: HEREDITARY MOTOR AND SENSORY NEUROPATHY
  4. ACETAMINOPHEN/OXYCODONE HYDROCHLO/OXYCODONE TEREPH [Suspect]
     Active Substance: ACETAMINOPHEN\OXYCODONE HYDROCHLORIDE\OXYCODONE TEREPHTHALATE
     Indication: PAIN
     Route: 065
  5. ACETAMINOPHEN/OXYCODONE HYDROCHLO/OXYCODONE TEREPH [Suspect]
     Active Substance: ACETAMINOPHEN\OXYCODONE HYDROCHLORIDE\OXYCODONE TEREPHTHALATE
     Indication: HEREDITARY MOTOR AND SENSORY NEUROPATHY
  6. MORPHINE [Suspect]
     Active Substance: MORPHINE
     Indication: HEREDITARY MOTOR AND SENSORY NEUROPATHY

REACTIONS (2)
  - Drug tolerance [Unknown]
  - Drug dependence [Unknown]
